FAERS Safety Report 6822655-4 (Version None)
Quarter: 2010Q3

REPORT INFORMATION
  Report Type: 
  Country: None (occurrence: None)
  Receive Date: 20100708
  Receipt Date: 20100701
  Transmission Date: 20110219
  Serious: Yes (Life-Threatening, Hospitalization)
  Sender: FDA-Public Use
  Company Number: DK-ROCHE-624302

PATIENT
  Sex: Male

DRUGS (8)
  1. AVASTIN [Suspect]
     Indication: RECTAL CANCER
     Route: 042
     Dates: start: 20090112, end: 20090223
  2. IRINOTECAN HCL [Suspect]
     Indication: RECTAL CANCER
     Route: 042
     Dates: start: 20090112, end: 20090224
  3. FLUOROURACIL [Suspect]
     Indication: RECTAL CANCER
     Route: 065
     Dates: start: 20090112, end: 20090224
  4. PANTOPRAZOLE [Concomitant]
     Dosage: FREQUENCY REPORTED AS EVERY DAY.
     Route: 048
  5. PREDNISOLONE [Concomitant]
     Indication: ANTIEMETIC SUPPORTIVE CARE
     Dosage: FREQUENCY REPORTED AS DAILY FOR THREE DAYS EVERY TWO WEEKS.
  6. ONDANSETRON [Concomitant]
     Indication: ANTIEMETIC SUPPORTIVE CARE
     Dosage: FREQUENCY REPORTED AS DAILY FOR TWO TO THREE DAYS.
  7. EMPERAL [Concomitant]
     Indication: ANTIEMETIC SUPPORTIVE CARE
     Route: 048
  8. ATROPINE ^DAK^ [Concomitant]
     Indication: ANTIEMETIC SUPPORTIVE CARE
     Route: 030

REACTIONS (5)
  - AORTIC ANEURYSM [None]
  - DIARRHOEA [None]
  - MUCOUS MEMBRANE DISORDER [None]
  - NAUSEA [None]
  - PROTEINURIA [None]
